FAERS Safety Report 6015040-9 (Version None)
Quarter: 2008Q4

REPORT INFORMATION
  Report Type: 
  Country: None (occurrence: None)
  Receive Date: 20081222
  Receipt Date: 20081211
  Transmission Date: 20090506
  Serious: Yes (Hospitalization)
  Sender: FDA-Public Use
  Company Number: FR-WYE-H07277608

PATIENT
  Sex: Female

DRUGS (8)
  1. CORDARONE [Suspect]
     Route: 048
  2. LASILIX [Suspect]
     Dosage: DOSE AND FREQUENCY NOT SPECIFIED
     Route: 065
     Dates: end: 20080101
  3. LASILIX [Suspect]
     Dosage: DOSE AND FREQUENCY NOT SPECIFIED
     Route: 065
     Dates: start: 20080101
  4. IMOVANE [Concomitant]
     Dosage: DOSE AND FREQUENCY NOT SPECIFIED
     Route: 048
     Dates: end: 20080101
  5. ACETAMINOPHEN [Concomitant]
     Dosage: DOSE AND FREQUENCY NOT SPECIFIED
     Route: 065
  6. FENOFIBRATE [Concomitant]
     Dosage: DOSE AND FREQUENCY NOT SPECIFIED
     Route: 048
     Dates: end: 20080101
  7. KARDEGIC [Suspect]
     Route: 048
  8. LEVOTHYROX [Concomitant]
     Dosage: DOSE AND FREQUENCY NOT SPECIFIED
     Route: 048

REACTIONS (1)
  - DERMATITIS BULLOUS [None]
